FAERS Safety Report 17799224 (Version 1)
Quarter: 2020Q2

REPORT INFORMATION
  Report Type: Report from Study
  Country: FR (occurrence: FR)
  Receive Date: 20200518
  Receipt Date: 20200518
  Transmission Date: 20200714
  Serious: Yes (Death, Life-Threatening)
  Sender: FDA-Public Use
  Company Number: FR-BAYER-2020-088775

PATIENT
  Age: 82 Year
  Sex: Male
  Weight: 70 kg

DRUGS (5)
  1. RED BLOOD CELLS [Concomitant]
     Active Substance: HUMAN RED BLOOD CELL
     Indication: PACKED RED BLOOD CELL TRANSFUSION
     Dosage: 2013 MILLILITRE TOTAL INTRA AND POST-OPERATIVELY (UP TO 48 HOURS)
     Dates: start: 20190902
  2. FIBRINOGEN [Concomitant]
     Active Substance: FIBRINOGEN HUMAN
     Indication: TRANSFUSION
     Dosage: 3 GRAM TOTAL INTRA AND POST-OPERATIVELY (UP TO 48 HOURS)
     Dates: start: 20190902
  3. APROTININ [Suspect]
     Active Substance: APROTININ
     Indication: AORTIC VALVE REPLACEMENT
     Dosage: 303 MILLILITRE EVERY 1 DAY(S) LOADING DOSE 1 MILLION KIU PUMP PRIMING DOSE 1 MILLION KIU TOTAL CONTI
     Route: 065
     Dates: start: 20190902, end: 20190902
  4. HEPARIN [Concomitant]
     Active Substance: HEPARIN SODIUM
     Indication: ANTICOAGULANT THERAPY
     Dosage: 35 KILO INTERNATIONAL UNIT TOTAL DURING SURGERY
     Route: 065
     Dates: start: 20190902
  5. FRESH FROZEN PLASMA [Concomitant]
     Active Substance: HUMAN PLASMA
     Indication: TRANSFUSION
     Dosage: 1113 MILLILITRE TOTAL INTRA AND POST-OPERATIVELY (UP TO  48 HOURS)
     Route: 065
     Dates: start: 20190902

REACTIONS (2)
  - Product use in unapproved indication [Unknown]
  - Vasoplegia syndrome [Fatal]

NARRATIVE: CASE EVENT DATE: 20190902
